FAERS Safety Report 16583389 (Version 2)
Quarter: 2019Q3

REPORT INFORMATION
  Report Type: Spontaneous
  Country: US (occurrence: US)
  Receive Date: 20190717
  Receipt Date: 20190820
  Transmission Date: 20191004
  Serious: No
  Sender: FDA-Public Use
  Company Number: US-PFIZER INC-2019191524

PATIENT
  Age: 61 Year
  Sex: Female

DRUGS (2)
  1. IBRANCE [Suspect]
     Active Substance: PALBOCICLIB
     Indication: BREAST CANCER METASTATIC
     Dosage: 75 MG, CYCLIC, [D 1-21 EVERY 28 DAYS]
     Route: 048
     Dates: start: 20190423
  2. IBRANCE [Suspect]
     Active Substance: PALBOCICLIB
     Dosage: 100 MG, UNK
     Dates: start: 2019

REACTIONS (3)
  - Product dose omission [Unknown]
  - Neoplasm progression [Unknown]
  - Fatigue [Unknown]

NARRATIVE: CASE EVENT DATE: 2019
